FAERS Safety Report 8563514-9 (Version None)
Quarter: 2012Q3

REPORT INFORMATION
  Report Type: 
  Country: None (occurrence: None)
  Receive Date: 20120802
  Receipt Date: 20120727
  Transmission Date: 20120928
  Serious: Yes (Other)
  Sender: FDA-Public Use
  Company Number: US-UCBSA-059432

PATIENT
  Age: 53 Year
  Sex: Female
  Weight: 61.23 kg

DRUGS (2)
  1. KEPPRA XR [Suspect]
     Indication: CONVULSION
  2. TEGRETOL [Concomitant]
     Dosage: UNKNOWN DOSE

REACTIONS (2)
  - INAPPROPRIATE SCHEDULE OF DRUG ADMINISTRATION [None]
  - HUMERUS FRACTURE [None]
